FAERS Safety Report 5841373-2 (Version None)
Quarter: 2008Q3

REPORT INFORMATION
  Report Type: 
  Country: None (occurrence: None)
  Receive Date: 20080812
  Receipt Date: 20080804
  Transmission Date: 20090109
  Serious: Yes (Hospitalization)
  Sender: FDA-Public Use
  Company Number: US-KINGPHARMUSA00001-K200800781

PATIENT

DRUGS (2)
  1. ALTACE [Suspect]
     Indication: HYPERTENSION
     Dosage: 5 MG, QD
     Route: 048
     Dates: start: 20070522
  2. SIMVASTATIN [Concomitant]
     Dosage: 10 MG, UNK

REACTIONS (4)
  - HYPOAESTHESIA [None]
  - MYELITIS TRANSVERSE [None]
  - PARAESTHESIA [None]
  - SENSORY LOSS [None]
